FAERS Safety Report 7096276-5 (Version None)
Quarter: 2010Q4

REPORT INFORMATION
  Report Type: 
  Country: None (occurrence: None)
  Receive Date: 20101109
  Receipt Date: 20101109
  Transmission Date: 20110411
  Serious: No
  Sender: FDA-Public Use
  Company Number: None

PATIENT
  Age: 35 Year
  Sex: Female
  Weight: 77.1115 kg

DRUGS (1)
  1. LAMOTRIGINE [Suspect]
     Indication: POSTPARTUM DEPRESSION
     Dosage: 25 MG ONE A DAY PO
     Route: 048
     Dates: start: 20100815, end: 20100828

REACTIONS (2)
  - MUSCULOSKELETAL STIFFNESS [None]
  - NECK PAIN [None]
